FAERS Safety Report 7678603-0 (Version None)
Quarter: 2011Q3

REPORT INFORMATION
  Report Type: 
  Country: None (occurrence: None)
  Receive Date: 20110811
  Receipt Date: 20110727
  Transmission Date: 20111222
  Serious: Yes (Other)
  Sender: FDA-Public Use
  Company Number: US-BAYER-2011-067224

PATIENT
  Age: 69 Year
  Sex: Male
  Weight: 109 kg

DRUGS (11)
  1. SIMVASTATIN [Concomitant]
  2. ALLOPURINOL [Concomitant]
  3. FUROSEMIDE [Concomitant]
  4. SYNTHROID [Concomitant]
  5. METOPROLOL TARTRATE [Concomitant]
  6. DIGOXIN [Concomitant]
  7. AZOPT [Concomitant]
  8. ASPIRIN [Concomitant]
     Dosage: COUNT SIZE NOT REPORTED
     Route: 048
  9. ALEVE (CAPLET) [Suspect]
     Indication: ANALGESIC THERAPY
     Dosage: 220 MG, UNK
     Route: 048
     Dates: start: 20110701, end: 20110725
  10. WARFARIN [Concomitant]
  11. OLOPATADINE [Concomitant]

REACTIONS (2)
  - VISUAL IMPAIRMENT [None]
  - OCULAR HYPERAEMIA [None]
